FAERS Safety Report 12931253 (Version 1)
Quarter: 2016Q4

REPORT INFORMATION
  Report Type: Spontaneous
  Country: US (occurrence: US)
  Receive Date: 20161110
  Receipt Date: 20161110
  Transmission Date: 20170207
  Serious: No
  Sender: FDA-Public Use
  Company Number: US-JAZZ-2016-US-018069

PATIENT
  Sex: Female

DRUGS (34)
  1. NITROFURANTOIN MCR [Concomitant]
  2. LYRICA [Concomitant]
     Active Substance: PREGABALIN
  3. METOPROLOL SUCCINATE ER [Concomitant]
     Active Substance: METOPROLOL SUCCINATE
  4. VALSARTAN. [Concomitant]
     Active Substance: VALSARTAN
  5. BELLADONNA [Concomitant]
     Active Substance: ATROPA BELLADONNA
  6. IMITREX [Concomitant]
     Active Substance: SUMATRIPTAN SUCCINATE
  7. OXYCODONE HYDROCHLORIDE. [Concomitant]
     Active Substance: OXYCODONE HYDROCHLORIDE
  8. AMITIZA [Concomitant]
     Active Substance: LUBIPROSTONE
  9. MOBIC [Concomitant]
     Active Substance: MELOXICAM
  10. PROTONIX                           /00661201/ [Concomitant]
     Active Substance: OMEPRAZOLE
  11. AMLODIPINE BESYLATE. [Concomitant]
     Active Substance: AMLODIPINE BESYLATE
  12. FOLIC ACID. [Concomitant]
     Active Substance: FOLIC ACID
  13. SULFASALAZINE. [Concomitant]
     Active Substance: SULFASALAZINE
  14. AMBIEN [Concomitant]
     Active Substance: ZOLPIDEM TARTRATE
  15. FIORINAL [Concomitant]
     Active Substance: ASPIRIN\BUTALBITAL\CAFFEINE
  16. XYREM [Suspect]
     Active Substance: SODIUM OXYBATE
     Dosage: DOSE ADJUSTMENTS
     Route: 048
     Dates: start: 200611, end: 201606
  17. ERGOCALCIFEROL. [Concomitant]
     Active Substance: ERGOCALCIFEROL
  18. DIOVAN [Concomitant]
     Active Substance: VALSARTAN
  19. XYREM [Suspect]
     Active Substance: SODIUM OXYBATE
     Indication: FIBROMYALGIA
     Dosage: 2.25 G, BID
     Route: 048
     Dates: start: 200608, end: 200611
  20. ALPRAZOLAM. [Concomitant]
     Active Substance: ALPRAZOLAM
  21. NORCO [Concomitant]
     Active Substance: ACETAMINOPHEN\HYDROCODONE BITARTRATE
  22. XANAX [Concomitant]
     Active Substance: ALPRAZOLAM
  23. GABAPENTIN. [Concomitant]
     Active Substance: GABAPENTIN
  24. NITROQUICK [Concomitant]
     Active Substance: NITROGLYCERIN
  25. XYREM [Suspect]
     Active Substance: SODIUM OXYBATE
     Dosage: 2.25 G, BID
     Route: 048
     Dates: start: 201606
  26. ASPIRIN EC [Concomitant]
     Active Substance: ASPIRIN
  27. CRESTOR [Concomitant]
     Active Substance: ROSUVASTATIN CALCIUM
  28. TOPROL XL [Concomitant]
     Active Substance: METOPROLOL SUCCINATE
  29. LORTAB [Concomitant]
     Active Substance: ACETAMINOPHEN\HYDROCODONE BITARTRATE
  30. RESTASIS [Concomitant]
     Active Substance: CYCLOSPORINE
  31. AMITRIPTYLINE HCL [Concomitant]
     Active Substance: AMITRIPTYLINE
  32. PROZAC [Concomitant]
     Active Substance: FLUOXETINE HYDROCHLORIDE
  33. PHENAZOPYRIDINE. [Concomitant]
     Active Substance: PHENAZOPYRIDINE
  34. VOLTAREN [Concomitant]
     Active Substance: DICLOFENAC SODIUM

REACTIONS (2)
  - Therapeutic response unexpected [Unknown]
  - Pre-existing condition improved [Unknown]
